FAERS Safety Report 18457584 (Version 2)
Quarter: 2020Q4

REPORT INFORMATION
  Report Type: Spontaneous
  Country: JP (occurrence: JP)
  Receive Date: 20201103
  Receipt Date: 20201214
  Transmission Date: 20210114
  Serious: Yes (Hospitalization)
  Sender: FDA-Public Use
  Company Number: JP-009507513-2009JPN000438J

PATIENT
  Age: 79 Year
  Sex: Male

DRUGS (3)
  1. PEMETREXED DISODIUM [Concomitant]
     Active Substance: PEMETREXED DISODIUM
     Indication: NON-SMALL CELL LUNG CANCER
     Dosage: 500 MILLIGRAM
     Route: 041
     Dates: start: 20200827
  2. KEYTRUDA [Suspect]
     Active Substance: PEMBROLIZUMAB
     Indication: NON-SMALL CELL LUNG CANCER
     Dosage: 200 MILLIGRAM, Q3W
     Route: 041
     Dates: start: 20200827, end: 20200827
  3. CARBOPLATIN. [Concomitant]
     Active Substance: CARBOPLATIN
     Indication: NON-SMALL CELL LUNG CANCER
     Dosage: AUC5
     Route: 041
     Dates: start: 20200827

REACTIONS (2)
  - Nervous system disorder [Recovered/Resolved]
  - Lung opacity [Unknown]

NARRATIVE: CASE EVENT DATE: 202008
